FAERS Safety Report 18275244 (Version 2)
Quarter: 2020Q4

REPORT INFORMATION
  Report Type: Report from Study
  Country: US (occurrence: US)
  Receive Date: 20200917
  Receipt Date: 20201120
  Transmission Date: 20210113
  Serious: No
  Sender: FDA-Public Use
  Company Number: US-SA-2020SA249420

PATIENT

DRUGS (2)
  1. DUPILUMAB [Suspect]
     Active Substance: DUPILUMAB
     Indication: NASAL POLYPS
     Dosage: 300 MG, FRQUENCY: OTHER
     Route: 058
     Dates: start: 202008, end: 2020
  2. DUPILUMAB [Suspect]
     Active Substance: DUPILUMAB
     Dosage: 300 MG, QOW
     Route: 058
     Dates: start: 20201113

REACTIONS (3)
  - Product dose omission issue [Unknown]
  - Product dispensing error [Unknown]
  - Product storage error [Unknown]

NARRATIVE: CASE EVENT DATE: 20200804
